FAERS Safety Report 15656079 (Version 1)
Quarter: 2018Q4

REPORT INFORMATION
  Report Type: Spontaneous
  Country: US (occurrence: US)
  Receive Date: 20181115
  Receipt Date: 20181115
  Transmission Date: 20190205
  Serious: Yes (Hospitalization)
  Sender: FDA-Public Use
  Company Number: None

PATIENT
  Age: 65 Year
  Sex: Male
  Weight: 91.6 kg

DRUGS (1)
  1. CAPECITABINE. [Suspect]
     Active Substance: CAPECITABINE
     Dates: end: 20180820

REACTIONS (4)
  - Small intestinal obstruction [None]
  - Peritonitis [None]
  - Bacterial infection [None]
  - Procedural pain [None]

NARRATIVE: CASE EVENT DATE: 20181114
